FAERS Safety Report 11521962 (Version 2)
Quarter: 2015Q4

REPORT INFORMATION
  Report Type: Spontaneous
  Country: CZ (occurrence: CZ)
  Receive Date: 20150918
  Receipt Date: 20151009
  Transmission Date: 20160304
  Serious: Yes (Death, Life-Threatening, Hospitalization, Other)
  Sender: FDA-Public Use
  Company Number: CZ-ASTRAZENECA-2015SE87708

PATIENT
  Age: 63 Year
  Sex: Female
  Weight: 58 kg

DRUGS (3)
  1. SIOFOR [Concomitant]
     Active Substance: METFORMIN HYDROCHLORIDE
     Indication: DIABETES MELLITUS INADEQUATE CONTROL
     Dosage: 1-1-1,  850 MG THREE TIMES A DAY
     Route: 048
  2. FORXIGA [Suspect]
     Active Substance: DAPAGLIFLOZIN
     Indication: DIABETES MELLITUS INADEQUATE CONTROL
     Dosage: 1-0-0, 10 MG EVERY DAY
     Route: 048
     Dates: start: 201505, end: 20150909
  3. MANINIL [Concomitant]
     Indication: DIABETES MELLITUS INADEQUATE CONTROL
     Dosage: 2-1-1, 5 MG THREE TIMES A DAY
     Route: 048

REACTIONS (5)
  - Acute respiratory failure [Unknown]
  - Malaise [Unknown]
  - Altered state of consciousness [Unknown]
  - Metabolic acidosis [Fatal]
  - Sepsis [Fatal]

NARRATIVE: CASE EVENT DATE: 201509
